FAERS Safety Report 9643966 (Version 3)
Quarter: 2013Q4

REPORT INFORMATION
  Report Type: Report from Study
  Country: US (occurrence: US)
  Receive Date: 20131024
  Receipt Date: 20131112
  Transmission Date: 20140711
  Serious: Yes (Other)
  Sender: FDA-Public Use
  Company Number: US-US-EMD SERONO, INC.-7231092

PATIENT
  Age: 50 Year
  Sex: Female

DRUGS (2)
  1. REBIF [Suspect]
     Indication: PRODUCT USED FOR UNKNOWN INDICATION
     Route: 058
     Dates: start: 20130314
  2. LYRICA [Concomitant]
     Indication: DEPRESSION

REACTIONS (2)
  - Hepatitis C [Not Recovered/Not Resolved]
  - Tremor [Not Recovered/Not Resolved]
